FAERS Safety Report 8513777 (Version 2)
Quarter: 2012Q4

REPORT INFORMATION
  Report Type: 
  Country: US (occurrence: US)
  Receive Date: 20120416
  Receipt Date: 20121017
  Transmission Date: 20130627
  Serious: Yes (Other)
  Sender: FDA-Public Use
  Company Number: US-US-EMD SERONO, INC.-7124736

PATIENT
  Sex: Male

DRUGS (1)
  1. REBIF [Suspect]
     Indication: PRODUCT USED FOR UNKNOWN INDICATION
     Route: 058
     Dates: start: 20100505, end: 20120113

REACTIONS (3)
  - Injection site ulcer [Recovering/Resolving]
  - Injection site nerve damage [Not Recovered/Not Resolved]
  - Platelet count decreased [Recovered/Resolved]
